FAERS Safety Report 17016413 (Version 1)
Quarter: 2019Q4

REPORT INFORMATION
  Report Type: Spontaneous
  Country: CA (occurrence: CA)
  Receive Date: 20191111
  Receipt Date: 20191111
  Transmission Date: 20200122
  Serious: Yes (Other)
  Sender: FDA-Public Use
  Company Number: CA-ROCHE-2459896

PATIENT
  Sex: Female

DRUGS (10)
  1. HUMIRA [Concomitant]
     Active Substance: ADALIMUMAB
     Route: 065
     Dates: end: 201906
  2. DEPO-MEDROL [Concomitant]
     Active Substance: METHYLPREDNISOLONE ACETATE
     Dosage: 80 MG VIAL ONCE TO RIGHT KNEE
     Route: 065
     Dates: start: 20190809, end: 20190809
  3. CELEBREX [Concomitant]
     Active Substance: CELECOXIB
     Dosage: OD TO BID PRN
     Route: 048
  4. XELJANZ [Concomitant]
     Active Substance: TOFACITINIB CITRATE
     Dosage: 5 MG BID
     Route: 065
  5. DEPO-MEDROL [Concomitant]
     Active Substance: METHYLPREDNISOLONE ACETATE
     Dosage: 80 MG VIAL ONCE TO LEFT KNEE
     Route: 065
     Dates: start: 20191007, end: 20191007
  6. L-THYROXINE [LEVOTHYROXINE] [Concomitant]
     Active Substance: LEVOTHYROXINE
     Dosage: 150 MCG Q UNK
     Route: 048
  7. ACTEMRA [Suspect]
     Active Substance: TOCILIZUMAB
     Indication: RHEUMATOID ARTHRITIS
     Route: 065
  8. NORTRIPTYLINE [Concomitant]
     Active Substance: NORTRIPTYLINE
     Dosage: 10 MG HS
     Route: 048
  9. SULFASALAZINE. [Concomitant]
     Active Substance: SULFASALAZINE
     Route: 065
     Dates: start: 2018, end: 201907
  10. CALCIUM [Concomitant]
     Active Substance: CALCIUM
     Route: 065

REACTIONS (5)
  - Synovial cyst [Unknown]
  - Osteoarthritis [Unknown]
  - Dry eye [Unknown]
  - Dry mouth [Unknown]
  - Influenza like illness [Unknown]
